FAERS Safety Report 20491846 (Version 1)
Quarter: 2022Q1

REPORT INFORMATION
  Report Type: Spontaneous
  Country: FR (occurrence: FR)
  Receive Date: 20220218
  Receipt Date: 20220218
  Transmission Date: 20220423
  Serious: Yes (Congenital Anomaly)
  Sender: FDA-Public Use
  Company Number: None

PATIENT
  Age: 1 Month
  Sex: Male

DRUGS (1)
  1. ADALIMUMAB [Suspect]
     Active Substance: ADALIMUMAB
     Indication: Foetal exposure during pregnancy
     Dosage: PATERNAL EXPOSURE PRIOR TO PREGNANCY: 1 DF, Q2W
     Route: 064

REACTIONS (3)
  - Pelvic kidney [Unknown]
  - Renal hypoplasia [Unknown]
  - Paternal exposure before pregnancy [Unknown]

NARRATIVE: CASE EVENT DATE: 20201030
